FAERS Safety Report 4747657-3 (Version None)
Quarter: 2005Q3

REPORT INFORMATION
  Report Type: 
  Country: None (occurrence: None)
  Receive Date: 20050818
  Receipt Date: 20050502
  Transmission Date: 20060218
  Serious: No
  Sender: FDA-Public Use
  Company Number: US-BRISTOL-MYERS SQUIBB COMPANY-12952172

PATIENT
  Age: 66 Year
  Sex: Female

DRUGS (1)
  1. TEQUIN [Suspect]
     Indication: BRONCHITIS
     Dates: end: 20050501

REACTIONS (1)
  - VAGINAL DISCHARGE [None]
